FAERS Safety Report 20056981 (Version 1)
Quarter: 2021Q4

REPORT INFORMATION
  Report Type: Spontaneous
  Country: US (occurrence: US)
  Receive Date: 20211111
  Receipt Date: 20211111
  Transmission Date: 20220303
  Serious: No
  Sender: FDA-Public Use
  Company Number: US-CIPLA LTD.-2021US05873

PATIENT

DRUGS (1)
  1. METOPROLOL [Suspect]
     Active Substance: METOPROLOL
     Indication: Palpitations
     Dosage: 100 MG EXTENDED-RELEASE TABLETS
     Route: 065
     Dates: start: 2021

REACTIONS (3)
  - Drug ineffective [Not Recovered/Not Resolved]
  - Product coating issue [Unknown]
  - Product physical issue [Unknown]

NARRATIVE: CASE EVENT DATE: 20210101
